FAERS Safety Report 6105972-5 (Version None)
Quarter: 2009Q1

REPORT INFORMATION
  Report Type: 
  Country: None (occurrence: None)
  Receive Date: 20090306
  Receipt Date: 20080707
  Transmission Date: 20090719
  Serious: No
  Sender: FDA-Public Use
  Company Number: US-BRISTOL-MYERS SQUIBB COMPANY-14253660

PATIENT

DRUGS (1)
  1. TAXOL [Suspect]
     Dosage: 1 DOSAGE FORM = 5-50CC INFUSED INTERSTITIALLY
     Route: 042

REACTIONS (2)
  - DRUG ADMINISTRATION ERROR [None]
  - EXTRAVASATION [None]
